FAERS Safety Report 17630867 (Version 1)
Quarter: 2020Q2

REPORT INFORMATION
  Report Type: Spontaneous
  Country: US (occurrence: US)
  Receive Date: 20200406
  Receipt Date: 20200406
  Transmission Date: 20200713
  Serious: No
  Sender: FDA-Public Use
  Company Number: US-CELGENEUS-USA-20200310688

PATIENT
  Sex: Female

DRUGS (2)
  1. OTEZLA [Suspect]
     Active Substance: APREMILAST
     Indication: PSORIATIC ARTHROPATHY
     Dosage: 60 MILLIGRAM
     Route: 048
     Dates: start: 201906, end: 201911
  2. OTEZLA [Suspect]
     Active Substance: APREMILAST
     Dosage: 22.5 MILLIGRAM
     Route: 058
     Dates: end: 201911

REACTIONS (1)
  - Drug ineffective [Unknown]
